FAERS Safety Report 10061954 (Version 2)
Quarter: 2014Q2

REPORT INFORMATION
  Report Type: Spontaneous
  Country: IT (occurrence: None)
  Receive Date: 20140403
  Receipt Date: 20140521
  Transmission Date: 20141212
  Serious: Yes (Other)
  Sender: FDA-Public Use
  Company Number: AUR-APL-2014-04038

PATIENT
  Age: 85 Year
  Sex: Female

DRUGS (2)
  1. MIRTAZAPINE [Suspect]
     Indication: PRODUCT USED FOR UNKNOWN INDICATION
     Dosage: (7.5 MG, TOTAL)
     Route: 048
     Dates: start: 20131201, end: 20131201
  2. MOTILIUM (DOMPERIDONE) [Concomitant]

REACTIONS (4)
  - Medication error [None]
  - Neurological symptom [None]
  - Cognitive disorder [None]
  - Psychomotor skills impaired [None]
